FAERS Safety Report 20446850 (Version 1)
Quarter: 2022Q1

REPORT INFORMATION
  Report Type: Spontaneous
  Country: US (occurrence: US)
  Receive Date: 20220208
  Receipt Date: 20220208
  Transmission Date: 20220423
  Serious: No
  Sender: FDA-Public Use
  Company Number: US-BEH-2022141912

PATIENT
  Age: 62 Year
  Sex: Male

DRUGS (1)
  1. PRIVIGEN [Suspect]
     Active Substance: HUMAN IMMUNOGLOBULIN G
     Indication: Hypogammaglobulinaemia
     Dosage: 45 GRAM, SINGLE
     Route: 042
     Dates: start: 20220125, end: 20220125

REACTIONS (7)
  - Recalled product administered [Unknown]
  - Chest discomfort [Unknown]
  - Recalled product administered [Unknown]
  - Nausea [Unknown]
  - Recalled product administered [Recovered/Resolved]
  - Rash papular [Recovered/Resolved]
  - Pruritus [Recovered/Resolved]

NARRATIVE: CASE EVENT DATE: 20220125
